FAERS Safety Report 14435102 (Version 1)
Quarter: 2018Q1

REPORT INFORMATION
  Report Type: Spontaneous
  Country: US (occurrence: US)
  Receive Date: 20180124
  Receipt Date: 20180124
  Transmission Date: 20180509
  Serious: No
  Sender: FDA-Public Use
  Company Number: None

PATIENT
  Age: 65 Year
  Sex: Female
  Weight: 181.44 kg

DRUGS (1)
  1. OXYCODONE/APAP 5/325MG [Suspect]
     Active Substance: ACETAMINOPHEN\OXYCODONE HYDROCHLORIDE
     Indication: ANALGESIC THERAPY
     Dosage: 10/325 1 Q 4 TO 6 HOURS PRN ORAL
     Route: 048
     Dates: start: 20180110, end: 20180118

REACTIONS (4)
  - Product substitution issue [None]
  - Diarrhoea [None]
  - Withdrawal syndrome [None]
  - Hyperhidrosis [None]

NARRATIVE: CASE EVENT DATE: 20180110
